FAERS Safety Report 14877520 (Version 3)
Quarter: 2018Q2

REPORT INFORMATION
  Report Type: Report from Study
  Country: US (occurrence: US)
  Receive Date: 20180510
  Receipt Date: 20180622
  Transmission Date: 20180711
  Serious: Yes (Hospitalization)
  Sender: FDA-Public Use
  Company Number: US-ACTELION-A-NJ2018-171991

PATIENT
  Age: 65 Year
  Sex: Female
  Weight: 56.24 kg

DRUGS (7)
  1. TYVASO [Suspect]
     Active Substance: TREPROSTINIL
     Indication: PULMONARY ARTERIAL HYPERTENSION
     Dosage: 18-54 MCG, QID
     Route: 055
     Dates: start: 20141020
  2. ELIQUIS [Concomitant]
     Active Substance: APIXABAN
  3. OXYGEN. [Concomitant]
     Active Substance: OXYGEN
  4. UPTRAVI [Suspect]
     Active Substance: SELEXIPAG
     Indication: PULMONARY ARTERIAL HYPERTENSION
     Dosage: 600 MCG, BID
     Route: 048
  5. UPTRAVI [Suspect]
     Active Substance: SELEXIPAG
     Dosage: 800 MCG, BID
     Route: 048
  6. LETAIRIS [Suspect]
     Active Substance: AMBRISENTAN
     Indication: PRODUCT USED FOR UNKNOWN INDICATION
     Dosage: 10 MG, QD
     Route: 065
     Dates: start: 20130412
  7. ADEMPAS [Concomitant]
     Active Substance: RIOCIGUAT
     Dosage: 1 MG, TID
     Dates: start: 20180316

REACTIONS (11)
  - Musculoskeletal pain [Recovering/Resolving]
  - Oedema peripheral [Recovering/Resolving]
  - Fall [Unknown]
  - Abdominal distension [Not Recovered/Not Resolved]
  - Dyspnoea [Recovering/Resolving]
  - Sinusitis [Not Recovered/Not Resolved]
  - Hypotension [Unknown]
  - Pain in extremity [Recovering/Resolving]
  - Chronic obstructive pulmonary disease [Unknown]
  - Wheezing [Recovering/Resolving]
  - Fatigue [Not Recovered/Not Resolved]
